FAERS Safety Report 7222555-4 (Version None)
Quarter: 2011Q1

REPORT INFORMATION
  Report Type: 
  Country: None (occurrence: None)
  Receive Date: 20110106
  Receipt Date: 20110106
  Transmission Date: 20110831
  Serious: Yes (Life-Threatening, Hospitalization, Other)
  Sender: FDA-Public Use
  Company Number: None

PATIENT
  Age: 69 Year
  Sex: Male
  Weight: 85.7298 kg

DRUGS (3)
  1. LEVAQUIN [Suspect]
     Indication: SINUSITIS
     Dosage: 2 TWICE/DAILY PO
     Route: 048
     Dates: start: 20101118, end: 20101223
  2. LEVAQUIN [Suspect]
     Indication: MYALGIA
     Dosage: 2 TWICE/DAILY PO
     Route: 048
     Dates: start: 20101118, end: 20101223
  3. MEDROL [Suspect]
     Dosage: SCHEDULED DOSAGE PO
     Route: 048

REACTIONS (4)
  - TENDON DISORDER [None]
  - NERVE INJURY [None]
  - ARTHRALGIA [None]
  - MYALGIA [None]
